FAERS Safety Report 7388599-7 (Version None)
Quarter: 2011Q2

REPORT INFORMATION
  Report Type: 
  Country: None (occurrence: None)
  Receive Date: 20110401
  Receipt Date: 20110321
  Transmission Date: 20111010
  Serious: Yes (Hospitalization)
  Sender: FDA-Public Use
  Company Number: US-BAYER-2011-025255

PATIENT
  Sex: Female

DRUGS (3)
  1. AVELOX [Suspect]
     Indication: PHARYNGITIS
     Dosage: 400 MG, UNK
     Route: 048
     Dates: start: 20090101, end: 20090101
  2. AVELOX [Suspect]
     Indication: EAR INFECTION
  3. ADVAIR DISKUS 100/50 [Concomitant]

REACTIONS (7)
  - CHEST DISCOMFORT [None]
  - GENERALISED ERYTHEMA [None]
  - HYPERSENSITIVITY [None]
  - ERYTHEMA [None]
  - DYSPNOEA [None]
  - PRURITUS [None]
  - INFLAMMATION [None]
